FAERS Safety Report 7151073-7 (Version None)
Quarter: 2010Q4

REPORT INFORMATION
  Report Type: 
  Country: None (occurrence: None)
  Receive Date: 20101122
  Receipt Date: 20101110
  Transmission Date: 20110411
  Serious: Yes (Other)
  Sender: FDA-Public Use
  Company Number: 2010SP059375

PATIENT
  Age: 35 Year
  Sex: Female
  Weight: 59 kg

DRUGS (3)
  1. GRACIAL (DESOGESTREL/ETHINYLESTRADIOL /00570801/) [Suspect]
     Indication: MENSTRUAL CYCLE MANAGEMENT
     Dosage: PO
     Route: 048
     Dates: start: 20101101, end: 20101105
  2. QUETIAPINE [Concomitant]
  3. RISPERIDONE [Concomitant]

REACTIONS (6)
  - ARRHYTHMIA [None]
  - DEPRESSION [None]
  - DRY MOUTH [None]
  - INSOMNIA [None]
  - MOOD ALTERED [None]
  - WEIGHT DECREASED [None]
